FAERS Safety Report 17084820 (Version 1)
Quarter: 2019Q4

REPORT INFORMATION
  Report Type: Spontaneous
  Country: IT (occurrence: IT)
  Receive Date: 20191127
  Receipt Date: 20191127
  Transmission Date: 20200122
  Serious: Yes (Other)
  Sender: FDA-Public Use
  Company Number: IT-ELI_LILLY_AND_COMPANY-IT201911010510

PATIENT
  Age: 81 Year
  Sex: Female

DRUGS (12)
  1. DIBASE [Concomitant]
     Active Substance: CHOLECALCIFEROL
     Indication: PRODUCT USED FOR UNKNOWN INDICATION
  2. SELOKEN [METOPROLOL SUCCINATE] [Concomitant]
     Indication: PRODUCT USED FOR UNKNOWN INDICATION
  3. FORSTEO 250UG/ML [Suspect]
     Active Substance: TERIPARATIDE
     Indication: OSTEOPOROSIS
     Dosage: UNK, UNKNOWN
     Route: 065
     Dates: start: 201811
  4. IRON [Concomitant]
     Active Substance: IRON
     Indication: PRODUCT USED FOR UNKNOWN INDICATION
  5. CACIT [CALCIUM CARBONATE] [Concomitant]
     Active Substance: CALCIUM CARBONATE
     Indication: PRODUCT USED FOR UNKNOWN INDICATION
  6. RIFACOL [Concomitant]
     Active Substance: RIFAXIMIN
     Indication: PRODUCT USED FOR UNKNOWN INDICATION
  7. ACEQUIN [Concomitant]
     Indication: PRODUCT USED FOR UNKNOWN INDICATION
  8. FERRO-GRAD [Concomitant]
     Active Substance: FERROUS SULFATE
     Indication: PRODUCT USED FOR UNKNOWN INDICATION
  9. NEXIUM I.V. [Concomitant]
     Active Substance: ESOMEPRAZOLE SODIUM
     Indication: PRODUCT USED FOR UNKNOWN INDICATION
  10. CARDIOASPIRIN [Concomitant]
     Active Substance: ASPIRIN
     Indication: PRODUCT USED FOR UNKNOWN INDICATION
  11. CALCIPARINA [Concomitant]
     Active Substance: HEPARIN CALCIUM
     Indication: PRODUCT USED FOR UNKNOWN INDICATION
  12. METFORAL [Concomitant]
     Active Substance: METFORMIN HYDROCHLORIDE
     Indication: PRODUCT USED FOR UNKNOWN INDICATION

REACTIONS (7)
  - Fall [Unknown]
  - Asthenia [Unknown]
  - Ankle fracture [Unknown]
  - Malaise [Unknown]
  - Nausea [Unknown]
  - Gait disturbance [Unknown]
  - Upper limb fracture [Recovered/Resolved with Sequelae]

NARRATIVE: CASE EVENT DATE: 201901
